FAERS Safety Report 19808689 (Version 1)
Quarter: 2021Q3

REPORT INFORMATION
  Report Type: Spontaneous
  Country: US (occurrence: US)
  Receive Date: 20210908
  Receipt Date: 20210908
  Transmission Date: 20211014
  Serious: Yes (Other)
  Sender: FDA-Public Use
  Company Number: None

PATIENT
  Age: 45 Year
  Sex: Female
  Weight: 61.2 kg

DRUGS (4)
  1. CLARITIN [Concomitant]
     Active Substance: LORATADINE
  2. FLOVENT [Concomitant]
     Active Substance: FLUTICASONE PROPIONATE
  3. ALLEGRA [Concomitant]
     Active Substance: FEXOFENADINE HYDROCHLORIDE
  4. XULANE [Suspect]
     Active Substance: ETHINYL ESTRADIOL\NORELGESTROMIN
     Indication: CONTRACEPTION
     Dosage: ?          OTHER STRENGTH:MCG;QUANTITY:3 PATCH(ES);OTHER FREQUENCY:WEEKLY FOR 3WEEKS;?
     Route: 062
     Dates: start: 20190901, end: 20210908

REACTIONS (4)
  - Skin weeping [None]
  - Application site pain [None]
  - Erythema [None]
  - Dry skin [None]

NARRATIVE: CASE EVENT DATE: 20210801
